FAERS Safety Report 9750381 (Version 1)
Quarter: 2013Q4

REPORT INFORMATION
  Report Type: Report from Study
  Country: US (occurrence: US)
  Receive Date: 20131212
  Receipt Date: 20131212
  Transmission Date: 20140711
  Serious: Yes (Hospitalization, Other)
  Sender: FDA-Public Use
  Company Number: US-ABBVIE-13P-163-1176272-00

PATIENT
  Sex: Male

DRUGS (13)
  1. HUMIRA [Suspect]
     Indication: CROHN^S DISEASE
  2. HUMIRA [Suspect]
  3. HUMIRA [Suspect]
     Indication: CROHN^S DISEASE
  4. FENTANYL [Suspect]
     Dosage: PATCHES 50 MCG Q 2 DAYS
  5. PERCOCET [Suspect]
     Indication: PRODUCT USED FOR UNKNOWN INDICATION
     Dosage: 10 MG 1 TAB QID
  6. VALIUM [Suspect]
  7. FIORINAL WITH CODEINE [Suspect]
     Indication: MIGRAINE
  8. OMEPRAZOLE [Concomitant]
     Indication: GASTRIC DISORDER
  9. PRIMIDONE [Concomitant]
     Indication: ESSENTIAL TREMOR
  10. VISTARIL [Concomitant]
     Indication: HYPERSENSITIVITY
  11. ZANTAC [Concomitant]
     Indication: GASTRIC DISORDER
  12. TRAZODONE [Concomitant]
     Indication: NERVOUSNESS
     Dosage: 100MG TWICE DAILY AND 50MG AT BEDTIME
  13. DIPHENHYDRAMINE [Concomitant]
     Indication: INSOMNIA
     Dosage: AT BEDTIME

REACTIONS (20)
  - Gastrointestinal stoma complication [Unknown]
  - Shoulder operation [Unknown]
  - Toxicity to various agents [Recovered/Resolved]
  - Injection site pain [Recovered/Resolved]
  - Polycythaemia [Unknown]
  - Fatigue [Not Recovered/Not Resolved]
  - Dyspnoea [Not Recovered/Not Resolved]
  - Heart rate increased [Recovered/Resolved]
  - Rash [Unknown]
  - Blood testosterone decreased [Unknown]
  - Infection [Unknown]
  - Exostosis [Not Recovered/Not Resolved]
  - Fistula [Recovered/Resolved]
  - Weight decreased [Unknown]
  - Excoriation [Not Recovered/Not Resolved]
  - Dysuria [Not Recovered/Not Resolved]
  - Gastric disorder [Unknown]
  - Essential tremor [Unknown]
  - Hypersensitivity [Unknown]
  - Nervousness [Unknown]
